FAERS Safety Report 4960584-1 (Version None)
Quarter: 2006Q2

REPORT INFORMATION
  Report Type: 
  Country: None (occurrence: None)
  Receive Date: 20060403
  Receipt Date: 20050628
  Transmission Date: 20061013
  Serious: Yes (Hospitalization)
  Sender: FDA-Public Use
  Company Number: US-MERCK-0506USA03972

PATIENT
  Age: 59 Year
  Sex: Male
  Weight: 86 kg

DRUGS (4)
  1. VIOXX [Suspect]
     Indication: BACK PAIN
     Route: 048
     Dates: start: 19991105, end: 20000704
  2. VIOXX [Suspect]
     Route: 048
     Dates: start: 19991105, end: 20000704
  3. VIOXX [Suspect]
     Indication: SHOULDER PAIN
     Route: 048
     Dates: start: 19991105, end: 20000704
  4. VIOXX [Suspect]
     Route: 048
     Dates: start: 19991105, end: 20000704

REACTIONS (4)
  - FOOT OPERATION [None]
  - INFECTION [None]
  - MYOCARDIAL INFARCTION [None]
  - POLYTRAUMATISM [None]
